FAERS Safety Report 7497994-7 (Version None)
Quarter: 2011Q2

REPORT INFORMATION
  Report Type: 
  Country: None (occurrence: None)
  Receive Date: 20110524
  Receipt Date: 20110512
  Transmission Date: 20111010
  Serious: No
  Sender: FDA-Public Use
  Company Number: US-BIOGENIDEC-2011BI010677

PATIENT
  Sex: Female

DRUGS (1)
  1. TYSABRI [Suspect]
     Indication: MULTIPLE SCLEROSIS
     Route: 042
     Dates: start: 20101111, end: 20110204

REACTIONS (7)
  - HEADACHE [None]
  - NASAL CONGESTION [None]
  - DEPRESSION [None]
  - RESPIRATORY TRACT INFECTION [None]
  - PAIN IN JAW [None]
  - COUGH [None]
  - URINARY TRACT INFECTION [None]
